FAERS Safety Report 25760069 (Version 1)
Quarter: 2025Q3

REPORT INFORMATION
  Report Type: Other
  Country: IN (occurrence: IN)
  Receive Date: 20250904
  Receipt Date: 20250904
  Transmission Date: 20251020
  Serious: Yes (Hospitalization, Other)
  Sender: ALVOGEN
  Company Number: IN-ALVOGEN-2025098636

PATIENT
  Age: 61 Year
  Sex: Male

DRUGS (1)
  1. NITROFURANTOIN [Suspect]
     Active Substance: NITROFURANTOIN
     Indication: Pyrexia

REACTIONS (11)
  - Myocardial infarction [Recovering/Resolving]
  - Ventricular tachycardia [Recovering/Resolving]
  - Acute kidney injury [Recovering/Resolving]
  - Depressed level of consciousness [Recovering/Resolving]
  - Cerebral infarction [Recovering/Resolving]
  - Orchitis [Recovering/Resolving]
  - Neutrophilia [Recovering/Resolving]
  - Hepatic function abnormal [Recovering/Resolving]
  - Cutaneous vasculitis [Recovering/Resolving]
  - Thrombocytopenia [Recovering/Resolving]
  - Off label use [Unknown]
